FAERS Safety Report 11151817 (Version 3)
Quarter: 2015Q3

REPORT INFORMATION
  Report Type: Spontaneous
  Country: US (occurrence: US)
  Receive Date: 20150601
  Receipt Date: 20150717
  Transmission Date: 20151125
  Serious: Yes (Hospitalization)
  Sender: FDA-Public Use
  Company Number: US-PFIZER INC-2015176875

PATIENT
  Age: 83 Year
  Sex: Female
  Weight: 66 kg

DRUGS (5)
  1. ASPIRIN. [Concomitant]
     Active Substance: ASPIRIN
     Dosage: UNK
  2. FISH OIL [Concomitant]
     Active Substance: FISH OIL
     Indication: ROUTINE HEALTH MAINTENANCE
     Dosage: UNK UNK, 1X/DAY
  3. ADVIL [Suspect]
     Active Substance: IBUPROFEN
     Indication: MUSCULOSKELETAL PAIN
     Dosage: 2 DF, 3X/DAY (2 PILLS 3 TIMES A DAY) 3-4 DAYS
     Route: 048
  4. ADVIL [Suspect]
     Active Substance: IBUPROFEN
     Dosage: UNK
  5. CITRACAL [Concomitant]
     Active Substance: CALCIUM CITRATE
     Dosage: UNK

REACTIONS (7)
  - Hypersensitivity [Unknown]
  - Poor quality drug administered [Recovered/Resolved]
  - Rash [Recovered/Resolved]
  - Abdominal discomfort [Unknown]
  - Musculoskeletal pain [Unknown]
  - Drug effect incomplete [Unknown]
  - Product quality issue [Recovered/Resolved]
